FAERS Safety Report 19704165 (Version 1)
Quarter: 2021Q3

REPORT INFORMATION
  Report Type: Spontaneous
  Country: ES (occurrence: ES)
  Receive Date: 20210816
  Receipt Date: 20210816
  Transmission Date: 20211014
  Serious: Yes (Disabling)
  Sender: FDA-Public Use
  Company Number: ES-ORGANON-O2108ESP000611

PATIENT
  Age: 25 Year
  Sex: Female
  Weight: 55 kg

DRUGS (2)
  1. NUVARING [Suspect]
     Active Substance: ETHINYL ESTRADIOL\ETONOGESTREL
     Indication: INTRAUTERINE CONTRACEPTION
     Dosage: I INSERTED THE RING AND LEFT IT FOR 3 WEEKS, REMOVED IT, A RING FREE WEEK PASSED AND INSERTED ANOTHE
     Route: 067
     Dates: start: 2015, end: 2021
  2. VENTOLIN [Concomitant]
     Active Substance: ALBUTEROL SULFATE
     Indication: AGONAL RESPIRATION
     Dosage: ON DEMAND, 100 MICROGRAMS / INHALATION, SUSPENSION FOR INHALATION IN PPRESSURIZED INHALER, 1 INHALER
     Dates: start: 2012

REACTIONS (3)
  - Migraine with aura [Not Recovered/Not Resolved]
  - Prolapse [Not Recovered/Not Resolved]
  - Haemorrhage [Not Recovered/Not Resolved]

NARRATIVE: CASE EVENT DATE: 2015
